FAERS Safety Report 5706634-6 (Version None)
Quarter: 2008Q2

REPORT INFORMATION
  Report Type: 
  Country: None (occurrence: None)
  Receive Date: 20080414
  Receipt Date: 20061017
  Transmission Date: 20081010
  Serious: Yes (Hospitalization, Other)
  Sender: FDA-Public Use
  Company Number: 2006VX001961

PATIENT
  Age: 30 Year
  Sex: Female

DRUGS (5)
  1. LEVATE (AMITRIPTYLINE HYDROCHLORIDE) [Suspect]
     Dosage: 45 MG;  PO
     Route: 048
  2. NARDIL [Suspect]
  3. SOMNOL TAB [Concomitant]
  4. NOCTEC [Concomitant]
  5. ATIVAN [Concomitant]

REACTIONS (7)
  - AMNESIA [None]
  - DYSPHAGIA [None]
  - EXTRAPYRAMIDAL DISORDER [None]
  - HYPOTENSION [None]
  - OCULOGYRIC CRISIS [None]
  - OVERDOSE [None]
  - SPEECH DISORDER [None]
